FAERS Safety Report 12939396 (Version 1)
Quarter: 2016Q4

REPORT INFORMATION
  Report Type: Spontaneous
  Country: FR (occurrence: FR)
  Receive Date: 20161115
  Receipt Date: 20161115
  Transmission Date: 20170207
  Serious: Yes (Other)
  Sender: FDA-Public Use
  Company Number: FR-ORION CORPORATION ORION PHARMA-ENTC2016-0677

PATIENT
  Age: 78 Year
  Sex: Female

DRUGS (1)
  1. STALEVO [Suspect]
     Active Substance: CARBIDOPA\ENTACAPONE\LEVODOPA
     Indication: PARKINSON^S DISEASE
     Dosage: STRENGTH: 125/31.25/200 MG
     Route: 048
     Dates: start: 201504, end: 20161013

REACTIONS (4)
  - Weight decreased [Recovering/Resolving]
  - Nausea [Recovered/Resolved]
  - Dyskinesia [Recovered/Resolved]
  - Therapy cessation [Unknown]
